FAERS Safety Report 10284070 (Version 4)
Quarter: 2015Q1

REPORT INFORMATION
  Report Type: Spontaneous
  Country: US (occurrence: US)
  Receive Date: 20140708
  Receipt Date: 20150303
  Transmission Date: 20150720
  Serious: No
  Sender: FDA-Public Use
  Company Number: US-PFIZER INC-2014182958

PATIENT
  Age: 52 Year
  Sex: Male

DRUGS (3)
  1. CARVEDILOL. [Concomitant]
     Active Substance: CARVEDILOL
     Dosage: UNK
  2. RANITIDINE [Concomitant]
     Active Substance: RANITIDINE\RANITIDINE HYDROCHLORIDE
     Dosage: UNK
  3. SUTENT [Suspect]
     Active Substance: SUNITINIB MALATE
     Indication: RENAL CANCER
     Dosage: 50 MG, DAILY
     Route: 048
     Dates: start: 20140117

REACTIONS (7)
  - Renal cancer [Unknown]
  - Pain in extremity [Unknown]
  - Disease progression [Unknown]
  - Diarrhoea [Unknown]
  - Dyspepsia [Unknown]
  - Constipation [Unknown]
  - Hypertension [Unknown]

NARRATIVE: CASE EVENT DATE: 20140627
